FAERS Safety Report 5074291-0 (Version None)
Quarter: 2006Q3

REPORT INFORMATION
  Report Type: 
  Country: None (occurrence: None)
  Receive Date: 20060808
  Receipt Date: 20060302
  Transmission Date: 20061208
  Serious: No
  Sender: FDA-Public Use
  Company Number: US-AMGEN-KDL171459

PATIENT
  Sex: Female
  Weight: 72.6 kg

DRUGS (3)
  1. PROCRIT [Suspect]
     Indication: ANAEMIA
     Route: 058
     Dates: start: 20060201
  2. CORTISOL [Concomitant]
  3. ADVIL [Concomitant]

REACTIONS (5)
  - ANOREXIA [None]
  - EPISTAXIS [None]
  - MALAISE [None]
  - PAIN IN EXTREMITY [None]
  - SKIN DISCOLOURATION [None]
